FAERS Safety Report 9147274 (Version 1)
Quarter: 2013Q1

REPORT INFORMATION
  Report Type: Spontaneous
  Country: FR (occurrence: None)
  Receive Date: 20130213
  Receipt Date: 20130213
  Transmission Date: 20140127
  Serious: Yes (Death)
  Sender: FDA-Public Use
  Company Number: FR-2012-0515

PATIENT
  Age: 62 Year
  Sex: Male

DRUGS (1)
  1. NAVELBINE [Suspect]
     Dates: start: 19900322

REACTIONS (5)
  - Myocardial infarction [None]
  - Cardiogenic shock [None]
  - Coronary artery insufficiency [None]
  - Arteriosclerosis coronary artery [None]
  - Coronary artery stenosis [None]
